FAERS Safety Report 11704513 (Version 3)
Quarter: 2016Q1

REPORT INFORMATION
  Report Type: Spontaneous
  Country: US (occurrence: US)
  Receive Date: 20151106
  Receipt Date: 20160107
  Transmission Date: 20160525
  Serious: No
  Sender: FDA-Public Use
  Company Number: US-PFIZER INC-2015358124

PATIENT
  Age: 28 Year
  Sex: Female
  Weight: 81.63 kg

DRUGS (2)
  1. RAPAMUNE [Suspect]
     Active Substance: SIROLIMUS
     Indication: CARDIAC DISORDER
     Dosage: 1 MG, 1X/DAY
     Route: 048
     Dates: start: 2009
  2. PROGRAF [Concomitant]
     Active Substance: TACROLIMUS\TACROLIMUS ANHYDROUS
     Indication: CARDIAC DISORDER
     Dosage: 2.5 MG, DAILY (1MG IN THE MORNING AND 1.5MG AT NIGHT)
     Route: 048
     Dates: start: 2009

REACTIONS (2)
  - Blood test abnormal [Not Recovered/Not Resolved]
  - Product use issue [Unknown]

NARRATIVE: CASE EVENT DATE: 2015
